FAERS Safety Report 8891326 (Version 1)
Quarter: 2012Q4

REPORT INFORMATION
  Report Type: Spontaneous
  Country: US (occurrence: None)
  Receive Date: 20121105
  Receipt Date: 20121105
  Transmission Date: 20130627
  Serious: Yes (Hospitalization)
  Sender: FDA-Public Use
  Company Number: None

PATIENT
  Age: 69 Year
  Sex: Male
  Weight: 81.65 kg

DRUGS (1)
  1. LIALDA [Suspect]
     Indication: GASTROINTESTINAL INFLAMMATION
     Dosage: 2 TABS IN AM ONCE PER DAY MOUTH
     Route: 048
     Dates: start: 20120912, end: 20121005

REACTIONS (3)
  - Pyrexia [None]
  - Neck pain [None]
  - Blood pressure diastolic decreased [None]
